FAERS Safety Report 20660827 (Version 1)
Quarter: 2022Q1

REPORT INFORMATION
  Report Type: Spontaneous
  Country: US (occurrence: US)
  Receive Date: 20220331
  Receipt Date: 20220331
  Transmission Date: 20220423
  Serious: No
  Sender: FDA-Public Use
  Company Number: US-MAYNE PHARMA-2022MYN000037

PATIENT
  Sex: Female
  Weight: 113.4 kg

DRUGS (1)
  1. LIOTHYRONINE [Suspect]
     Active Substance: LIOTHYRONINE
     Indication: Thyroid mass
     Dosage: UNK

REACTIONS (2)
  - Adverse reaction [Unknown]
  - Condition aggravated [Unknown]
